FAERS Safety Report 24186514 (Version 4)
Quarter: 2024Q4

REPORT INFORMATION
  Report Type: Report from Study
  Country: US (occurrence: US)
  Receive Date: 20240808
  Receipt Date: 20241122
  Transmission Date: 20250114
  Serious: Yes (Life-Threatening, Disabling)
  Sender: NOVARTIS
  Company Number: US-002147023-NVSC2024US160447

PATIENT
  Age: 59 Year
  Sex: Female

DRUGS (2)
  1. KESIMPTA [Suspect]
     Active Substance: OFATUMUMAB
     Indication: Relapsing multiple sclerosis
     Dosage: 20 MG, QMO
     Route: 058
     Dates: start: 20240731
  2. KESIMPTA [Suspect]
     Active Substance: OFATUMUMAB
     Indication: Multiple sclerosis
     Dosage: UNK, (WEEKLY FOR 3 WEEKS) (30 DAYS)
     Route: 030
     Dates: start: 20240805

REACTIONS (9)
  - Chills [Recovered/Resolved]
  - Gait disturbance [Not Recovered/Not Resolved]
  - Body temperature increased [Not Recovered/Not Resolved]
  - Feeling abnormal [Recovered/Resolved]
  - Body temperature abnormal [Recovered/Resolved]
  - Pain [Unknown]
  - Mood swings [Unknown]
  - Pyrexia [Unknown]
  - Drug ineffective [Not Recovered/Not Resolved]

NARRATIVE: CASE EVENT DATE: 20240806
